FAERS Safety Report 18306861 (Version 1)
Quarter: 2020Q3

REPORT INFORMATION
  Report Type: Spontaneous
  Country: JP (occurrence: JP)
  Receive Date: 20200924
  Receipt Date: 20200924
  Transmission Date: 20201103
  Serious: Yes (Hospitalization, Other)
  Sender: FDA-Public Use
  Company Number: JP-ACCORD-202281

PATIENT
  Age: 66 Year
  Sex: Female
  Weight: 40.4 kg

DRUGS (3)
  1. FLUOROURACIL. [Suspect]
     Active Substance: FLUOROURACIL
     Indication: COLON CANCER STAGE IV
     Dosage: CONTINUOUS IV INFUSION OVER 46 HOURS
     Route: 042
  2. PANITUMUMAB [Concomitant]
     Active Substance: PANITUMUMAB
     Indication: COLON CANCER STAGE IV
     Dosage: ON DAY 1
     Route: 042
  3. FOLINIC ACID [Concomitant]
     Active Substance: LEUCOVORIN
     Indication: COLON CANCER STAGE IV
     Dosage: ON DAY 1
     Route: 042

REACTIONS (2)
  - Altered state of consciousness [Recovered/Resolved]
  - Hyperammonaemia [Recovered/Resolved]
